FAERS Safety Report 25655622 (Version 1)
Quarter: 2025Q3

REPORT INFORMATION
  Report Type: Report from Study
  Country: US (occurrence: US)
  Receive Date: 20250807
  Receipt Date: 20250807
  Transmission Date: 20251020
  Serious: Yes (Other)
  Sender: ABBVIE
  Company Number: US-ABBVIE-6403584

PATIENT
  Age: 74 Year
  Sex: Female

DRUGS (2)
  1. RINVOQ [Suspect]
     Active Substance: UPADACITINIB
     Indication: Giant cell arteritis
     Dosage: STRENGTH- 15MG, FIRST ADMIN DATE:-2025
     Route: 048
  2. RINVOQ [Suspect]
     Active Substance: UPADACITINIB
     Indication: Giant cell arteritis
     Dosage: STRENGTH- 15MG, LAST ADMIN DATE-2025
     Route: 048
     Dates: start: 202506

REACTIONS (1)
  - Knee arthroplasty [Unknown]

NARRATIVE: CASE EVENT DATE: 20250710
